FAERS Safety Report 21554378 (Version 2)
Quarter: 2023Q1

REPORT INFORMATION
  Report Type: Report from Study
  Country: GB (occurrence: GB)
  Receive Date: 20221104
  Receipt Date: 20230329
  Transmission Date: 20230418
  Serious: Yes (Other)
  Sender: FDA-Public Use
  Company Number: GB-002147023-NVSC2022GB246417

PATIENT
  Sex: Male

DRUGS (1)
  1. COSENTYX [Suspect]
     Active Substance: SECUKINUMAB
     Indication: Ankylosing spondylitis
     Dosage: 300 MG, QMO (2 PRE-FILLED DISPOSABLE INJECTION)
     Route: 058
     Dates: start: 20210909

REACTIONS (3)
  - Uveitis [Unknown]
  - Inflammatory marker increased [Unknown]
  - Therapeutic product effect decreased [Unknown]
